FAERS Safety Report 25022035 (Version 1)
Quarter: 2025Q1

REPORT INFORMATION
  Report Type: Spontaneous
  Country: US (occurrence: US)
  Receive Date: 20250228
  Receipt Date: 20250228
  Transmission Date: 20250409
  Serious: No
  Sender: IPSEN BIOPHARMACEUTICALS, INC.
  Company Number: US-IPSEN Group, Research and Development-2025-04463

PATIENT
  Sex: Male

DRUGS (1)
  1. SOMATULINE DEPOT [Suspect]
     Active Substance: LANREOTIDE ACETATE
     Indication: Neoplasm malignant
     Dosage: 120 MG/0.5ML SYRINGE (1 SYRINGE), DEEP SQ
     Route: 058
     Dates: start: 20250127

REACTIONS (1)
  - Stress [Not Recovered/Not Resolved]
